FAERS Safety Report 4701180-0 (Version None)
Quarter: 2005Q2

REPORT INFORMATION
  Report Type: 
  Country: None (occurrence: None)
  Receive Date: 20050628
  Receipt Date: 20050613
  Transmission Date: 20051028
  Serious: Yes (Other)
  Sender: FDA-Public Use
  Company Number: US-AMGEN-US138283

PATIENT
  Sex: Male
  Weight: 92.2 kg

DRUGS (4)
  1. ENBREL [Suspect]
     Indication: ANKYLOSING SPONDYLITIS
     Dates: start: 20030101
  2. ALLEGRA [Concomitant]
  3. SINGULAIR [Concomitant]
  4. INTAL [Concomitant]

REACTIONS (2)
  - DIABETES INSIPIDUS [None]
  - VIRAL INFECTION [None]
